FAERS Safety Report 11088099 (Version 2)
Quarter: 2015Q2

REPORT INFORMATION
  Report Type: Spontaneous
  Country: US (occurrence: US)
  Receive Date: 20150504
  Receipt Date: 20150511
  Transmission Date: 20150821
  Serious: No
  Sender: FDA-Public Use
  Company Number: US-PFIZER INC-2015143903

PATIENT
  Age: 78 Year
  Sex: Female

DRUGS (10)
  1. BAYER ASPIRIN [Concomitant]
     Active Substance: ASPIRIN
  2. POTASSIUM [Concomitant]
     Active Substance: POTASSIUM
  3. CARVEDILOL. [Concomitant]
     Active Substance: CARVEDILOL
  4. OMEPRAZOLE. [Concomitant]
     Active Substance: OMEPRAZOLE
  5. ATIVAN [Concomitant]
     Active Substance: LORAZEPAM
  6. METFORMIN [Concomitant]
     Active Substance: METFORMIN HYDROCHLORIDE
  7. LISINOPRIL. [Concomitant]
     Active Substance: LISINOPRIL
  8. NEURONTIN [Suspect]
     Active Substance: GABAPENTIN
     Indication: NEUROPATHY PERIPHERAL
     Dosage: UNK
     Dates: start: 201401
  9. LEVEMIR [Concomitant]
     Active Substance: INSULIN DETEMIR
  10. JANUVIA [Concomitant]
     Active Substance: SITAGLIPTIN PHOSPHATE

REACTIONS (2)
  - Migraine [Unknown]
  - Product use issue [Unknown]

NARRATIVE: CASE EVENT DATE: 201401
